FAERS Safety Report 10287665 (Version 2)
Quarter: 2014Q1

REPORT INFORMATION
  Report Type: Spontaneous
  Country: US (occurrence: None)
  Receive Date: 20120817
  Receipt Date: 20130815
  Transmission Date: 20141002
  Serious: Yes (Other)
  Sender: FDA-Public Use
  Company Number: ADR-2012-00627

PATIENT
  Sex: Female

DRUGS (2)
  1. LIORESAL [Suspect]
     Indication: MUSCLE SPASTICITY
  2. LIORESAL [Suspect]
     Indication: MUSCLE SPASTICITY

REACTIONS (8)
  - No therapeutic response [None]
  - Sensation of heaviness [None]
  - Balance disorder [None]
  - Movement disorder [None]
  - Dizziness [None]
  - Gait disturbance [None]
  - Muscle spasticity [None]
  - Musculoskeletal stiffness [None]
